FAERS Safety Report 19232202 (Version 1)
Quarter: 2021Q2

REPORT INFORMATION
  Report Type: Spontaneous
  Country: US (occurrence: US)
  Receive Date: 20210507
  Receipt Date: 20210507
  Transmission Date: 20210717
  Serious: Yes (Life-Threatening, Hospitalization, Other)
  Sender: FDA-Public Use
  Company Number: US-ACCORD-224252

PATIENT
  Age: 22 Year
  Sex: Female

DRUGS (2)
  1. FLUOXETINE [Suspect]
     Active Substance: FLUOXETINE HYDROCHLORIDE
     Indication: DEPRESSION
  2. OXYCODONE/OXYCODONE HYDROCHLORIDE/OXYCODONE PECTINATE/OXYCODONE TEREPHTHALATE [Interacting]
     Active Substance: OXYCODONE
     Indication: POSTOPERATIVE ANALGESIA

REACTIONS (4)
  - Drug interaction [Recovered/Resolved]
  - Leukocytosis [Recovered/Resolved]
  - Serotonin syndrome [Recovered/Resolved]
  - Lactic acidosis [Recovered/Resolved]
